FAERS Safety Report 10189123 (Version 1)
Quarter: 2014Q2

REPORT INFORMATION
  Report Type: Spontaneous
  Country: US (occurrence: US)
  Receive Date: 20140522
  Receipt Date: 20140522
  Transmission Date: 20141212
  Serious: Yes (Hospitalization)
  Sender: FDA-Public Use
  Company Number: US-JNJFOC-20140514119

PATIENT
  Age: 85 Year
  Sex: Male

DRUGS (11)
  1. IMBRUVICA [Suspect]
     Indication: MANTLE CELL LYMPHOMA
     Route: 048
     Dates: start: 20140502
  2. FUROSEMIDE [Concomitant]
  3. MAGNESIUM CITRATE [Concomitant]
  4. METOPROLOL [Concomitant]
  5. INDAPAMIDE [Concomitant]
  6. PRAVACHOL [Concomitant]
  7. PROSCAR [Concomitant]
  8. TRICOR [Concomitant]
  9. WARFARIN [Concomitant]
  10. ALLOPURINOL [Concomitant]
  11. OMEPRAZOLE [Concomitant]

REACTIONS (5)
  - Traumatic intracranial haemorrhage [Unknown]
  - Fall [Unknown]
  - Feeling abnormal [Unknown]
  - Asthenia [Unknown]
  - Dizziness [Unknown]
